FAERS Safety Report 10983178 (Version 1)
Quarter: 2015Q2

REPORT INFORMATION
  Report Type: Spontaneous
  Country: US (occurrence: None)
  Receive Date: 20150402
  Receipt Date: 20150402
  Transmission Date: 20150821
  Serious: Yes (Hospitalization)
  Sender: FDA-Public Use
  Company Number: None

PATIENT
  Age: 67 Year
  Sex: Female
  Weight: 54.43 kg

DRUGS (2)
  1. CALCIUM SUPPLEMENTS [Concomitant]
     Active Substance: CALCIUM
  2. ALENDRONATE 70 MG [Suspect]
     Active Substance: ALENDRONATE SODIUM
     Indication: OSTEOPOROSIS
     Dosage: 1 TAB 1 X WEEK TAKEN BY MOUTH
     Route: 048

REACTIONS (3)
  - Influenza like illness [None]
  - Palpitations [None]
  - Supraventricular tachycardia [None]

NARRATIVE: CASE EVENT DATE: 20150331
